FAERS Safety Report 7194378-6 (Version None)
Quarter: 2010Q4

REPORT INFORMATION
  Report Type: 
  Country: None (occurrence: None)
  Receive Date: 20101124
  Receipt Date: 20101025
  Transmission Date: 20110411
  Serious: No
  Sender: FDA-Public Use
  Company Number: 021102

PATIENT
  Sex: Female
  Weight: 75 kg

DRUGS (6)
  1. LACOSAMIDE [Suspect]
     Indication: EPILEPSY
     Dosage: (500 MG, 150 MG IN A.M. AND AFTERNOON AND 200 MG IN P.M. ORAL)
     Route: 048
     Dates: start: 20090805
  2. LAMICTAL [Suspect]
     Indication: EPILEPSY
     Dosage: (500 MG, SPLITS IT TO RECEIVE THREE TIMES A DAY ORAL)
     Route: 048
     Dates: start: 20090410
  3. CLOBAZAM [Concomitant]
  4. CELEBREX [Concomitant]
  5. OXYCODONE [Concomitant]
  6. IBUPROFEN [Concomitant]

REACTIONS (2)
  - DIPLOPIA [None]
  - DIZZINESS [None]
